FAERS Safety Report 7506697-1 (Version None)
Quarter: 2011Q2

REPORT INFORMATION
  Report Type: 
  Country: None (occurrence: None)
  Receive Date: 20110526
  Receipt Date: 20110512
  Transmission Date: 20111010
  Serious: Yes (Hospitalization, Other)
  Sender: FDA-Public Use
  Company Number: JP-JNJFOC-20110406365

PATIENT
  Sex: Female

DRUGS (19)
  1. REMICADE [Suspect]
     Route: 042
     Dates: start: 20101224
  2. BONOTEO [Concomitant]
     Route: 048
  3. ATELEC [Concomitant]
     Route: 048
  4. LENDORMIN [Concomitant]
     Route: 048
  5. TANATRIL [Concomitant]
     Route: 048
  6. METHOTREXATE [Concomitant]
     Route: 048
  7. REMICADE [Suspect]
     Route: 042
     Dates: start: 20100218
  8. REMICADE [Suspect]
     Route: 042
     Dates: start: 20100902
  9. REMICADE [Suspect]
     Route: 042
     Dates: start: 20100318
  10. REMICADE [Suspect]
     Route: 042
     Dates: start: 20101028
  11. EVISTA [Concomitant]
     Route: 048
  12. REMICADE [Suspect]
     Route: 042
     Dates: start: 20110218
  13. REMICADE [Suspect]
     Route: 042
     Dates: start: 20100708
  14. ONEALFA [Concomitant]
     Route: 048
  15. REMICADE [Suspect]
     Indication: RHEUMATOID ARTHRITIS
     Route: 042
     Dates: start: 20100513
  16. REMICADE [Suspect]
     Route: 042
     Dates: start: 20100204
  17. PLAVIX [Concomitant]
     Route: 048
  18. OMEPRAZOLE [Concomitant]
  19. AZULFIDINE [Concomitant]
     Route: 048

REACTIONS (1)
  - TUBERCULOUS PLEURISY [None]
